FAERS Safety Report 5705028-7 (Version None)
Quarter: 2008Q2

REPORT INFORMATION
  Report Type: 
  Country: None (occurrence: None)
  Receive Date: 20080414
  Receipt Date: 20080402
  Transmission Date: 20081010
  Serious: Yes (Life-Threatening, Hospitalization, Other)
  Sender: FDA-Public Use
  Company Number: CL-PFIZER INC-2008030382

PATIENT
  Age: 65 Year
  Sex: Female

DRUGS (4)
  1. CHAMPIX [Suspect]
     Route: 048
     Dates: start: 20070101, end: 20070101
  2. PROZAC [Concomitant]
  3. ANTIHYPERTENSIVES [Concomitant]
  4. CARDIAC GLYCOSIDES [Concomitant]

REACTIONS (1)
  - RESPIRATORY ARREST [None]
